FAERS Safety Report 14586045 (Version 1)
Quarter: 2018Q1

REPORT INFORMATION
  Report Type: Spontaneous
  Country: SE (occurrence: SE)
  Receive Date: 20180301
  Receipt Date: 20180301
  Transmission Date: 20180509
  Serious: Yes (Disabling)
  Sender: FDA-Public Use
  Company Number: PHHY2018SE033095

PATIENT
  Age: 73 Year
  Sex: Female
  Weight: 61 kg

DRUGS (3)
  1. ENALAPRIL [Suspect]
     Active Substance: ENALAPRIL
     Indication: HYPERTENSION
     Dosage: 10 MG, QD
     Route: 065
     Dates: start: 20110101, end: 20170901
  2. ENALAPRIL [Suspect]
     Active Substance: ENALAPRIL
     Dosage: 20 MG, QD
     Route: 065
     Dates: start: 20170901, end: 20180107
  3. HYDROCORTISONE. [Concomitant]
     Active Substance: HYDROCORTISONE
     Indication: PRODUCT USED FOR UNKNOWN INDICATION
     Route: 065

REACTIONS (6)
  - Speech disorder [Recovering/Resolving]
  - Salivary hypersecretion [Recovering/Resolving]
  - Dysphagia [Recovering/Resolving]
  - Swelling face [Recovering/Resolving]
  - Soft tissue swelling [Recovering/Resolving]
  - Dyspnoea [Recovering/Resolving]

NARRATIVE: CASE EVENT DATE: 20160101
